FAERS Safety Report 8285149-8 (Version None)
Quarter: 2012Q2

REPORT INFORMATION
  Report Type: 
  Country: None (occurrence: None)
  Receive Date: 20120413
  Receipt Date: 20110614
  Transmission Date: 20120825
  Serious: No
  Sender: FDA-Public Use
  Company Number: US-ASTRAZENECA-2011SE36428

PATIENT
  Age: 61 Year
  Sex: Male

DRUGS (2)
  1. NEXIUM [Suspect]
     Route: 048
  2. CRESTOR [Concomitant]

REACTIONS (2)
  - DIARRHOEA [None]
  - ADVERSE DRUG REACTION [None]
